FAERS Safety Report 4903498-5 (Version None)
Quarter: 2006Q1

REPORT INFORMATION
  Report Type: 
  Country: None (occurrence: None)
  Receive Date: 20060206
  Receipt Date: 20060206
  Transmission Date: 20060701
  Serious: No
  Sender: FDA-Public Use
  Company Number: None

PATIENT
  Age: 68 Year
  Sex: Male
  Weight: 53.5244 kg

DRUGS (1)
  1. RISPERIDONE [Suspect]
     Indication: AGITATION
     Dosage: 1 MG PO QHS
     Route: 048
     Dates: start: 20051018

REACTIONS (4)
  - INADEQUATE DIET [None]
  - INCREASED INSULIN REQUIREMENT [None]
  - TREATMENT NONCOMPLIANCE [None]
  - WEIGHT INCREASED [None]
